FAERS Safety Report 7578404-8 (Version None)
Quarter: 2011Q2

REPORT INFORMATION
  Report Type: 
  Country: None (occurrence: None)
  Receive Date: 20110628
  Receipt Date: 20110620
  Transmission Date: 20111010
  Serious: Yes (Life-Threatening)
  Sender: FDA-Public Use
  Company Number: JP-ACTELION-A-CH2011-50031

PATIENT
  Sex: Male

DRUGS (5)
  1. OXYGEN [Concomitant]
  2. TRACLEER [Suspect]
     Indication: PULMONARY ARTERIAL HYPERTENSION
     Dosage: UNK , UNK
     Route: 048
  3. FUROSEMIDE [Concomitant]
  4. TRACLEER [Suspect]
     Dosage: UNK , UNK
     Route: 048
  5. TRICHLORMETHIAZIDE [Concomitant]

REACTIONS (3)
  - CARDIAC FAILURE [None]
  - BLOOD PRESSURE DECREASED [None]
  - PULMONARY OEDEMA [None]
